FAERS Safety Report 22663258 (Version 3)
Quarter: 2024Q1

REPORT INFORMATION
  Report Type: Spontaneous
  Country: KR (occurrence: KR)
  Receive Date: 20230703
  Receipt Date: 20240108
  Transmission Date: 20240410
  Serious: Yes (Hospitalization)
  Sender: FDA-Public Use
  Company Number: KR-JNJFOC-20230654715

PATIENT
  Age: 18 Year
  Sex: Female
  Weight: 103.8 kg

DRUGS (8)
  1. ACETAMINOPHEN [Suspect]
     Active Substance: ACETAMINOPHEN
     Indication: Product used for unknown indication
     Dosage: TAKEN 60 PILLS OF 650MG
     Route: 048
     Dates: start: 20230307, end: 20230307
  2. SAXENDA [Suspect]
     Active Substance: LIRAGLUTIDE
     Indication: Product used for unknown indication
     Dosage: 06 MG/ML, QD
     Route: 058
     Dates: start: 20221122, end: 20221205
  3. SAXENDA [Suspect]
     Active Substance: LIRAGLUTIDE
     Dosage: 1.2 MG/ML, QD
     Route: 058
     Dates: start: 20221206, end: 20221219
  4. SAXENDA [Suspect]
     Active Substance: LIRAGLUTIDE
     Dosage: 1.8 MG/ML, QD
     Route: 058
     Dates: start: 20221220
  5. SAXENDA [Suspect]
     Active Substance: LIRAGLUTIDE
     Dosage: 2.4 MG/ML, QD
     Route: 058
  6. SAXENDA [Suspect]
     Active Substance: LIRAGLUTIDE
     Dosage: 3 MG/ML, QD
     Route: 058
  7. SAXENDA [Suspect]
     Active Substance: LIRAGLUTIDE
     Dosage: 2.4MG/ML, QD
     Route: 058
     Dates: end: 20230110
  8. CARBOXYMETHYLCELLULOSE SODIUM [Concomitant]
     Active Substance: CARBOXYMETHYLCELLULOSE SODIUM
     Indication: Product used for unknown indication
     Route: 065

REACTIONS (5)
  - Suicide attempt [Unknown]
  - Affective disorder [Unknown]
  - Abdominal discomfort [Unknown]
  - Urticaria [Unknown]
  - Intentional overdose [Unknown]

NARRATIVE: CASE EVENT DATE: 20230307
